FAERS Safety Report 4973966-9 (Version None)
Quarter: 2006Q2

REPORT INFORMATION
  Report Type: 
  Country: None (occurrence: None)
  Receive Date: 20060410
  Receipt Date: 20060330
  Transmission Date: 20061013
  Serious: Yes (Other)
  Sender: FDA-Public Use
  Company Number: 2006033817

PATIENT
  Age: 58 Year
  Sex: Male
  Weight: 96.6162 kg

DRUGS (4)
  1. FRAGMIN [Suspect]
     Indication: THROMBOSIS
     Dosage: (10000 I.U., BID
     Dates: start: 20060202, end: 20060201
  2. COUMADIN [Concomitant]
  3. HEPARIN [Concomitant]
  4. PERCOCET [Concomitant]

REACTIONS (5)
  - COAGULOPATHY [None]
  - HAEMOGLOBIN DECREASED [None]
  - INCISION SITE ERYTHEMA [None]
  - PLATELET COUNT DECREASED [None]
  - PLATELET COUNT INCREASED [None]
